FAERS Safety Report 5871513-0 (Version None)
Quarter: 2008Q3

REPORT INFORMATION
  Report Type: 
  Country: None (occurrence: None)
  Receive Date: 20080905
  Receipt Date: 20080403
  Transmission Date: 20090109
  Serious: Yes (Hospitalization)
  Sender: FDA-Public Use
  Company Number: A0714967A

PATIENT
  Age: 46 Year
  Sex: Male
  Weight: 100 kg

DRUGS (9)
  1. REQUIP [Suspect]
     Indication: PARKINSON'S DISEASE
     Dosage: 5MG SIX TIMES PER DAY
     Route: 048
     Dates: start: 20020103, end: 20070921
  2. COMPLAN [Concomitant]
  3. LODOSYN [Concomitant]
  4. UNSPECIFIED MEDICATION [Concomitant]
  5. CARBIDOPA [Concomitant]
  6. ZANTAC [Concomitant]
  7. RELAFEN [Concomitant]
  8. SELEGILINE HCL [Concomitant]
  9. AMANTADINE HCL [Concomitant]

REACTIONS (1)
  - GAMBLING [None]
